FAERS Safety Report 8556760-1 (Version None)
Quarter: 2012Q3

REPORT INFORMATION
  Report Type: 
  Country: None (occurrence: None)
  Receive Date: 20120801
  Receipt Date: 20120723
  Transmission Date: 20120928
  Serious: Yes (Hospitalization)
  Sender: FDA-Public Use
  Company Number: US-BAYER-2012-051522

PATIENT
  Age: 41 Year
  Sex: Female
  Weight: 74.83 kg

DRUGS (9)
  1. COLACE [Concomitant]
  2. NEXIUM [Concomitant]
  3. ASCORBIC ACID [Concomitant]
  4. YAZ [Suspect]
     Dosage: UNK
     Dates: start: 20060201
  5. IRON [Concomitant]
  6. IBUPROFEN [Concomitant]
  7. YASMIN [Suspect]
     Dosage: UNK
     Dates: start: 20060201
  8. NIFEREX [Concomitant]
  9. MIRENA [Concomitant]

REACTIONS (2)
  - DEEP VEIN THROMBOSIS [None]
  - PULMONARY EMBOLISM [None]
